FAERS Safety Report 12704669 (Version 1)
Quarter: 2016Q3

REPORT INFORMATION
  Report Type: Report from Study
  Country: CA (occurrence: CA)
  Receive Date: 20160831
  Receipt Date: 20160831
  Transmission Date: 20161109
  Serious: Yes (Other)
  Sender: FDA-Public Use
  Company Number: CA-TAKEDA-2016TUS015019

PATIENT
  Age: 37 Year
  Sex: Male

DRUGS (5)
  1. VEDOLIZUMAB [Suspect]
     Active Substance: VEDOLIZUMAB
     Indication: CROHN^S DISEASE
     Dosage: 300 MG, Q4WEEKS
     Route: 042
     Dates: start: 20160623
  2. PERCOCET [Concomitant]
     Active Substance: ACETAMINOPHEN\OXYCODONE HYDROCHLORIDE
     Dosage: UNK
  3. COVERSYL PLUS [Concomitant]
     Active Substance: INDAPAMIDE\PERINDOPRIL
     Dosage: UNK, QD
  4. GRAVOL [Concomitant]
     Active Substance: DIMENHYDRINATE
     Dosage: UNK
  5. CIPRALEX [Concomitant]
     Active Substance: ESCITALOPRAM OXALATE
     Dosage: UNK, QD

REACTIONS (4)
  - Off label use [Unknown]
  - Inguinal hernia [Unknown]
  - Testicular microlithiasis [Unknown]
  - Intestinal stenosis [Unknown]

NARRATIVE: CASE EVENT DATE: 20160623
